FAERS Safety Report 5474635-1 (Version None)
Quarter: 2007Q4

REPORT INFORMATION
  Report Type: 
  Country: None (occurrence: None)
  Receive Date: 20071002
  Receipt Date: 20070926
  Transmission Date: 20080405
  Serious: Yes (Life-Threatening)
  Sender: FDA-Public Use
  Company Number: IT-BAYER-200715007GDS

PATIENT
  Age: 81 Year
  Sex: Male

DRUGS (5)
  1. CIPROXIN [Suspect]
     Indication: ANTIBIOTIC PROPHYLAXIS
     Dosage: TOTAL DAILY DOSE: 1000 MG
     Route: 048
     Dates: start: 20070725, end: 20070810
  2. LANOXIN [Concomitant]
     Indication: DRUG USE FOR UNKNOWN INDICATION
     Route: 065
  3. ESOPRAL [Concomitant]
     Indication: DRUG USE FOR UNKNOWN INDICATION
     Route: 065
  4. MINITRAN [Concomitant]
     Indication: DRUG USE FOR UNKNOWN INDICATION
     Route: 062
  5. LASIX [Concomitant]
     Indication: DRUG USE FOR UNKNOWN INDICATION
     Route: 065

REACTIONS (2)
  - HAEMATURIA [None]
  - THROMBOCYTOPENIA [None]
